FAERS Safety Report 4864029-1 (Version None)
Quarter: 2005Q4

REPORT INFORMATION
  Report Type: 
  Country: None (occurrence: None)
  Receive Date: 20051219
  Receipt Date: 20051205
  Transmission Date: 20060501
  Serious: Yes (Disabling, Other)
  Sender: FDA-Public Use
  Company Number: 2005164450

PATIENT
  Age: 3 Year
  Sex: Male

DRUGS (2)
  1. ATARAX [Suspect]
     Indication: ILL-DEFINED DISORDER
     Dates: start: 20030501, end: 20030501
  2. ALL OTHER THERAPEUTIC PRODUCTS (ALL OTHER THERAPEUTIC PRODUCTS) [Suspect]
     Indication: ILL-DEFINED DISORDER
     Dates: start: 20030501

REACTIONS (5)
  - BRADYCARDIA [None]
  - DEPRESSED LEVEL OF CONSCIOUSNESS [None]
  - HYPOXIC ENCEPHALOPATHY [None]
  - NEURODEVELOPMENTAL DISORDER [None]
  - RESPIRATORY DEPRESSION [None]
